FAERS Safety Report 12595978 (Version 1)
Quarter: 2016Q3

REPORT INFORMATION
  Report Type: Spontaneous
  Country: US (occurrence: US)
  Receive Date: 20160727
  Receipt Date: 20160727
  Transmission Date: 20161109
  Serious: No
  Sender: FDA-Public Use
  Company Number: US-009507513-1607USA007757

PATIENT
  Sex: Male

DRUGS (1)
  1. ZETIA [Suspect]
     Active Substance: EZETIMIBE
     Indication: BLOOD CHOLESTEROL INCREASED
     Dosage: UNK, ONCE DAILY
     Route: 048

REACTIONS (1)
  - Hallucination [Recovered/Resolved]
